FAERS Safety Report 21997328 (Version 1)
Quarter: 2023Q1

REPORT INFORMATION
  Report Type: Report from Study
  Country: US (occurrence: US)
  Receive Date: 20230216
  Receipt Date: 20230216
  Transmission Date: 20230418
  Serious: Yes (Hospitalization)
  Sender: FDA-Public Use
  Company Number: US-BIOGEN-2023BI01186975

PATIENT
  Age: 68 Year
  Sex: Female

DRUGS (1)
  1. VUMERITY [Suspect]
     Active Substance: DIROXIMEL FUMARATE
     Indication: Multiple sclerosis
     Dosage: TAKE 2 CAPSULES (462MG)  BY MOUTH TWICE A DAY
     Route: 050
     Dates: start: 20230112

REACTIONS (4)
  - Urinary tract infection [Recovered/Resolved]
  - Ear congestion [Recovered/Resolved]
  - Transient ischaemic attack [Recovered/Resolved]
  - Deafness [Recovered/Resolved]

NARRATIVE: CASE EVENT DATE: 20230129
